FAERS Safety Report 11628373 (Version 2)
Quarter: 2015Q4

REPORT INFORMATION
  Report Type: Spontaneous
  Country: US (occurrence: US)
  Receive Date: 20151014
  Receipt Date: 20151102
  Transmission Date: 20160304
  Serious: No
  Sender: FDA-Public Use
  Company Number: US-009507513-1510USA005549

PATIENT
  Age: 25 Year
  Sex: Female

DRUGS (1)
  1. NEXPLANON [Suspect]
     Active Substance: ETONOGESTREL
     Dosage: UNK
     Route: 059
     Dates: start: 20140825, end: 20151008

REACTIONS (5)
  - Muscle spasms [Unknown]
  - Weight increased [Unknown]
  - Device breakage [Recovered/Resolved]
  - Haemorrhage [Unknown]
  - Metrorrhagia [Unknown]

NARRATIVE: CASE EVENT DATE: 2014
